FAERS Safety Report 19307081 (Version 1)
Quarter: 2021Q2

REPORT INFORMATION
  Report Type: Spontaneous
  Country: CN (occurrence: CN)
  Receive Date: 20210526
  Receipt Date: 20210526
  Transmission Date: 20210717
  Serious: Yes (Other)
  Sender: FDA-Public Use
  Company Number: CN-ORGANON-O2105CHN002011

PATIENT
  Sex: Male

DRUGS (1)
  1. EZETROL [Suspect]
     Active Substance: EZETIMIBE
     Dosage: UNK
     Route: 048

REACTIONS (4)
  - Haemorrhage [Unknown]
  - Product packaging issue [Unknown]
  - Product quality issue [Unknown]
  - Scratch [Unknown]

NARRATIVE: CASE EVENT DATE: 20210523
